FAERS Safety Report 7578139-1 (Version None)
Quarter: 2011Q2

REPORT INFORMATION
  Report Type: 
  Country: None (occurrence: None)
  Receive Date: 20110628
  Receipt Date: 20110608
  Transmission Date: 20111010
  Serious: Yes (Congenital Anomaly)
  Sender: FDA-Public Use
  Company Number: A0874694A

PATIENT
  Sex: Female

DRUGS (4)
  1. VALTREX [Concomitant]
     Route: 064
     Dates: start: 20040315
  2. XANAX [Concomitant]
     Route: 064
     Dates: start: 20040211
  3. AMBIEN [Concomitant]
     Route: 064
     Dates: start: 20040209
  4. PAXIL CR [Suspect]
     Indication: DEPRESSION
     Route: 064
     Dates: start: 20040209

REACTIONS (2)
  - DRUG EXPOSURE DURING PREGNANCY [None]
  - CARDIAC MURMUR [None]
